FAERS Safety Report 4957679-5 (Version None)
Quarter: 2006Q1

REPORT INFORMATION
  Report Type: 
  Country: None (occurrence: None)
  Receive Date: 20060324
  Receipt Date: 20060307
  Transmission Date: 20060701
  Serious: Yes (Hospitalization)
  Sender: FDA-Public Use
  Company Number: US200603001822

PATIENT
  Age: 76 Year
  Sex: Female

DRUGS (2)
  1. FORTEO [Suspect]
     Dates: start: 20060124
  2. FORTEO PEN  (FORTEO PEN) PEN, DISPOSABLE [Concomitant]

REACTIONS (5)
  - CLOSTRIDIAL INFECTION [None]
  - DIARRHOEA [None]
  - DISEASE RECURRENCE [None]
  - MALAISE [None]
  - PHARMACEUTICAL PRODUCT COMPLAINT [None]
